FAERS Safety Report 7512033-7 (Version None)
Quarter: 2011Q2

REPORT INFORMATION
  Report Type: 
  Country: None (occurrence: None)
  Receive Date: 20110531
  Receipt Date: 20110519
  Transmission Date: 20111010
  Serious: Yes (Hospitalization)
  Sender: FDA-Public Use
  Company Number: FR-ASTRAZENECA-2011SE31241

PATIENT
  Sex: Male

DRUGS (9)
  1. AVODART [Suspect]
     Route: 048
  2. CORDARONE [Suspect]
     Route: 048
  3. NOOTROPYL [Suspect]
     Route: 048
     Dates: end: 20110324
  4. VASTAREL [Suspect]
     Route: 048
     Dates: end: 20110406
  5. LASIX [Suspect]
     Route: 048
  6. CORDARONE [Suspect]
     Route: 048
     Dates: start: 20110321
  7. NEXIUM [Suspect]
     Route: 048
     Dates: end: 20110406
  8. RAMIPRIL [Suspect]
     Route: 048
  9. POTASSIUM CHLORIDE [Suspect]
     Route: 048

REACTIONS (3)
  - AGGRESSION [None]
  - HALLUCINATION, VISUAL [None]
  - HYPOTHYROIDISM [None]
